FAERS Safety Report 8435444-4 (Version None)
Quarter: 2012Q2

REPORT INFORMATION
  Report Type: 
  Country: None (occurrence: None)
  Receive Date: 20120614
  Receipt Date: 20120605
  Transmission Date: 20120825
  Serious: Yes (Other)
  Sender: FDA-Public Use
  Company Number: US-BRISTOL-MYERS SQUIBB COMPANY-16664286

PATIENT
  Age: 53 Year
  Sex: Female
  Weight: 57 kg

DRUGS (1)
  1. ORENCIA [Suspect]
     Indication: RHEUMATOID ARTHRITIS
     Route: 058

REACTIONS (6)
  - MIGRAINE [None]
  - PERICARDITIS [None]
  - MUSCLE SPASMS [None]
  - PNEUMONIA [None]
  - HYPERTENSION [None]
  - BREAST PAIN [None]
